FAERS Safety Report 9900377 (Version 3)
Quarter: 2014Q2

REPORT INFORMATION
  Report Type: Spontaneous
  Country: US (occurrence: US)
  Receive Date: 20140216
  Receipt Date: 20140417
  Transmission Date: 20141212
  Serious: Yes (Disabling)
  Sender: FDA-Public Use
  Company Number: US-009507513-1402USA005494

PATIENT
  Sex: Female
  Weight: 64.85 kg

DRUGS (2)
  1. NEXPLANON [Suspect]
     Indication: CONTRACEPTION
     Dosage: 68MG IMPLANT, UNK
     Route: 059
     Dates: start: 20130724, end: 20140203
  2. DEPO-PROVERA [Suspect]
     Indication: CONTRACEPTION
     Dosage: UNK
     Dates: start: 201401

REACTIONS (7)
  - Mood swings [Recovered/Resolved]
  - Bipolar I disorder [Recovered/Resolved]
  - Psychotic disorder [Recovered/Resolved]
  - Hallucination [Unknown]
  - Metrorrhagia [Recovered/Resolved]
  - Menstruation irregular [Unknown]
  - Medication error [Unknown]
